FAERS Safety Report 8514314-7 (Version None)
Quarter: 2012Q3

REPORT INFORMATION
  Report Type: 
  Country: None (occurrence: None)
  Receive Date: 20120717
  Receipt Date: 20120709
  Transmission Date: 20120928
  Serious: Yes (Life-Threatening, Hospitalization)
  Sender: FDA-Public Use
  Company Number: CA-JNJFOC-20120704652

PATIENT
  Sex: Male
  Weight: 98 kg

DRUGS (4)
  1. REMICADE [Suspect]
     Dosage: 14TH DOSE
     Route: 042
     Dates: start: 20120220, end: 20120220
  2. IMURAN [Concomitant]
     Route: 065
  3. REMICADE [Suspect]
     Indication: CROHN'S DISEASE
     Route: 042
     Dates: start: 20120709
  4. REMICADE [Suspect]
     Route: 042

REACTIONS (6)
  - ABSCESS [None]
  - INCISION SITE INFECTION [None]
  - SEPSIS [None]
  - LARGE INTESTINE PERFORATION [None]
  - GASTROENTERITIS NOROVIRUS [None]
  - INTESTINAL OBSTRUCTION [None]
